FAERS Safety Report 24045175 (Version 2)
Quarter: 2024Q3

REPORT INFORMATION
  Report Type: Spontaneous
  Country: US (occurrence: US)
  Receive Date: 20240703
  Receipt Date: 20240724
  Transmission Date: 20241016
  Serious: Yes (Other)
  Sender: COOPERSURGICAL
  Company Number: US-COOPERSURGICAL, INC.-2024CPS001970

PATIENT
  Sex: Female
  Weight: 67.12 kg

DRUGS (5)
  1. PARAGARD T 380A [Suspect]
     Active Substance: COPPER
     Indication: Contraception
     Dosage: UNK
     Route: 015
     Dates: start: 20200127, end: 20240701
  2. BENZONATATE [Concomitant]
     Active Substance: BENZONATATE
     Dosage: 100 MG
  3. IPRATROPIUM BROMIDE [Concomitant]
     Active Substance: IPRATROPIUM BROMIDE\IPRATROPIUM BROMIDE ANHYDROUS
     Dosage: 42 ?G
  4. NURTEC ODT [Concomitant]
     Active Substance: RIMEGEPANT SULFATE
     Dosage: 75 MG
  5. EPINEPHRINE [Concomitant]
     Active Substance: EPINEPHRINE
     Dosage: 1 TIME
     Route: 030

REACTIONS (22)
  - Ovarian cyst [Unknown]
  - Pelvic fluid collection [Unknown]
  - Polycystic ovaries [Unknown]
  - Seasonal allergy [Unknown]
  - Chest pain [Unknown]
  - Dyspnoea [Unknown]
  - Weight fluctuation [Unknown]
  - Neck pain [Unknown]
  - Musculoskeletal stiffness [Unknown]
  - Temperature intolerance [Unknown]
  - Paraesthesia [Unknown]
  - Depression [Unknown]
  - Skin texture abnormal [Unknown]
  - Skin discolouration [Unknown]
  - Headache [Unknown]
  - Tension [Unknown]
  - Acne [Unknown]
  - Cervical dysplasia [Recovered/Resolved]
  - Abnormal uterine bleeding [Unknown]
  - Device dislocation [Recovered/Resolved]
  - Back pain [Unknown]
  - Dizziness [Unknown]

NARRATIVE: CASE EVENT DATE: 20200101
